FAERS Safety Report 5141869-5 (Version None)
Quarter: 2006Q4

REPORT INFORMATION
  Report Type: 
  Country: None (occurrence: None)
  Receive Date: 20061027
  Receipt Date: 20061016
  Transmission Date: 20070319
  Serious: Yes (Other)
  Sender: FDA-Public Use
  Company Number: 2006-149252-NL

PATIENT
  Age: 35 Year
  Sex: Male

DRUGS (5)
  1. MIRTAZAPINE [Suspect]
     Indication: ANXIETY
     Dosage: 30 MG, ORAL
     Dates: start: 20060705, end: 20060801
  2. MIRTAZAPINE [Suspect]
     Indication: DEPRESSION
     Dosage: 30 MG, ORAL
     Dates: start: 20060705, end: 20060801
  3. DIAZEPAM [Concomitant]
  4. FLUOXETINE [Concomitant]
  5. PROMAZINE HYDROCHLORIDE [Concomitant]

REACTIONS (4)
  - ALANINE AMINOTRANSFERASE ABNORMAL [None]
  - GAMMA-GLUTAMYLTRANSFERASE ABNORMAL [None]
  - WAIST CIRCUMFERENCE INCREASED [None]
  - WEIGHT INCREASED [None]
